FAERS Safety Report 7186236-8 (Version None)
Quarter: 2010Q4

REPORT INFORMATION
  Report Type: 
  Country: None (occurrence: None)
  Receive Date: 20101222
  Receipt Date: 20101215
  Transmission Date: 20110411
  Serious: Yes (Hospitalization, Other)
  Sender: FDA-Public Use
  Company Number: CA-PFIZER INC-CA-WYE-H16970310

PATIENT
  Age: 59 Year
  Sex: Male

DRUGS (1)
  1. EFFEXOR [Suspect]
     Dosage: 225 MG, 1X/DAY

REACTIONS (1)
  - SEROTONIN SYNDROME [None]
